FAERS Safety Report 7545442-0 (Version None)
Quarter: 2011Q2

REPORT INFORMATION
  Report Type: 
  Country: None (occurrence: None)
  Receive Date: 20110614
  Receipt Date: 20110607
  Transmission Date: 20111010
  Serious: Yes (Hospitalization)
  Sender: FDA-Public Use
  Company Number: US-AMGEN-USASP2011029534

PATIENT
  Age: 74 Year
  Sex: Male

DRUGS (2)
  1. NPLATE [Suspect]
     Indication: IDIOPATHIC THROMBOCYTOPENIC PURPURA
     Dosage: 550 A?G, UNK
     Dates: start: 20110416
  2. CORTICOSTEROIDS [Concomitant]

REACTIONS (2)
  - FALL [None]
  - DEEP VEIN THROMBOSIS [None]
